FAERS Safety Report 8336869-8 (Version None)
Quarter: 2012Q2

REPORT INFORMATION
  Report Type: 
  Country: None (occurrence: None)
  Receive Date: 20120504
  Receipt Date: 20120425
  Transmission Date: 20120825
  Serious: Yes (Other)
  Sender: FDA-Public Use
  Company Number: US-SANOFI-AVENTIS-2012SA029362

PATIENT
  Sex: Male

DRUGS (2)
  1. SOLOSTAR [Suspect]
     Dates: start: 20110101
  2. LANTUS [Suspect]
     Dosage: 20 UNITS IN MORNING AND 40 UNITS IN EVENING
     Route: 058
     Dates: start: 20110101

REACTIONS (1)
  - SPINAL DISORDER [None]
